FAERS Safety Report 24367976 (Version 1)
Quarter: 2024Q3

REPORT INFORMATION
  Report Type: Spontaneous
  Country: US (occurrence: US)
  Receive Date: 20240926
  Receipt Date: 20240926
  Transmission Date: 20241017
  Serious: No
  Sender: AMGEN
  Company Number: US-AMGEN-USASP2024187009

PATIENT

DRUGS (3)
  1. AVSOLA [Suspect]
     Active Substance: INFLIXIMAB-AXXQ
     Indication: Product used for unknown indication
     Dosage: 100 MILLIGRAM (3 VIALS)
     Route: 065
  2. AVSOLA [Suspect]
     Active Substance: INFLIXIMAB-AXXQ
     Dosage: 100 MILLIGRAM (3 VIALS)
     Route: 065
  3. AVSOLA [Suspect]
     Active Substance: INFLIXIMAB-AXXQ
     Dosage: 100 MILLIGRAM (6 VIALS)
     Route: 065

REACTIONS (3)
  - Adverse reaction [Unknown]
  - Feeling abnormal [Unknown]
  - Product preparation error [Unknown]
